FAERS Safety Report 5397701-8 (Version None)
Quarter: 2007Q3

REPORT INFORMATION
  Report Type: 
  Country: None (occurrence: None)
  Receive Date: 20070726
  Receipt Date: 20070719
  Transmission Date: 20080115
  Serious: Yes (Hospitalization)
  Sender: FDA-Public Use
  Company Number: BG-AVENTIS-200716674GDDC

PATIENT
  Age: 55 Year
  Sex: Female

DRUGS (5)
  1. FLUOROURACIL [Suspect]
     Route: 042
  2. OXALIPLATIN [Concomitant]
     Route: 042
  3. LEUCOVORIN CALCIUM [Concomitant]
     Route: 042
  4. ONDANSETRON [Concomitant]
  5. METOCLOPRAMIDE [Concomitant]

REACTIONS (2)
  - CARDIAC FAILURE ACUTE [None]
  - PULMONARY OEDEMA [None]
